FAERS Safety Report 5250882-9 (Version None)
Quarter: 2007Q1

REPORT INFORMATION
  Report Type: 
  Country: None (occurrence: None)
  Receive Date: 20070228
  Receipt Date: 20060724
  Transmission Date: 20070707
  Serious: No
  Sender: FDA-Public Use
  Company Number: US-GLAXOSMITHKLINE-A0613319A

PATIENT
  Age: 39 Year
  Sex: Female

DRUGS (5)
  1. LAMICTAL [Suspect]
     Indication: BIPOLAR DISORDER
     Dosage: 350MG PER DAY
     Route: 048
     Dates: start: 20060401
  2. ZYPREXA [Concomitant]
  3. LITHIUM CARBONATE [Concomitant]
  4. WELLBUTRIN [Concomitant]
  5. RELPAX [Concomitant]

REACTIONS (2)
  - AMNESIA [None]
  - SLEEP WALKING [None]
